FAERS Safety Report 8968266 (Version 1)
Quarter: 2012Q4

REPORT INFORMATION
  Report Type: 
  Country: EC (occurrence: EC)
  Receive Date: 20121217
  Receipt Date: 20121217
  Transmission Date: 20130627
  Serious: Yes (Hospitalization, Other)
  Sender: FDA-Public Use
  Company Number: PHHY2012EC115068

PATIENT
  Sex: Female

DRUGS (1)
  1. DIOVAN HCT [Suspect]
     Dosage: 1 DF (160 mg vals/ 12.5 mg HCT), QD
     Route: 048
     Dates: start: 20120719

REACTIONS (1)
  - Brain neoplasm [Unknown]
